FAERS Safety Report 21726248 (Version 1)
Quarter: 2022Q4

REPORT INFORMATION
  Report Type: Spontaneous
  Country: US (occurrence: None)
  Receive Date: 20221213
  Receipt Date: 20221213
  Transmission Date: 20230113
  Serious: No
  Sender: FDA-Public Use
  Company Number: None

PATIENT
  Sex: Female
  Weight: 103.42 kg

DRUGS (6)
  1. IBRANCE [Suspect]
     Active Substance: PALBOCICLIB
     Indication: Breast cancer female
     Dosage: FREQUENCY : DAILY;?OTHER ROUTE : OR 21D ON 7D OFF;?
     Route: 050
  2. ALEVE [Concomitant]
     Active Substance: NAPROXEN SODIUM
  3. LEVOXYL [Concomitant]
     Active Substance: LEVOTHYROXINE SODIUM
  4. LISINOPRIL [Concomitant]
     Active Substance: LISINOPRIL
  5. MOUNJARO [Concomitant]
     Active Substance: TIRZEPATIDE
  6. VITAMINS [Concomitant]
     Active Substance: VITAMINS

REACTIONS (3)
  - Oedema [None]
  - Dysphagia [None]
  - Laboratory test abnormal [None]
